FAERS Safety Report 20084587 (Version 3)
Quarter: 2021Q4

REPORT INFORMATION
  Report Type: Report from Study
  Country: CN (occurrence: None)
  Receive Date: 20211118
  Receipt Date: 20211208
  Transmission Date: 20220303
  Serious: Yes (Hospitalization)
  Sender: FDA-Public Use
  Company Number: CN-ROCHE-2953181

PATIENT
  Age: 66 Year
  Sex: Male
  Weight: 71.5 kg

DRUGS (7)
  1. ATEZOLIZUMAB [Suspect]
     Active Substance: ATEZOLIZUMAB
     Indication: Small cell lung cancer extensive stage
     Dosage: MOST RECENT DOSE OF ATEZOLIZUMAB PRIOR TO AE/SAE 29/OCT/2021
     Route: 042
     Dates: start: 20210510
  2. CISPLATIN [Suspect]
     Active Substance: CISPLATIN
     Indication: Small cell lung cancer extensive stage
     Dosage: MOST RECENT DOSE OF CISPLATIN PRIOR TO AE/SAE 18/JUL/2021
     Route: 042
     Dates: start: 20210510
  3. ETOPOSIDE [Suspect]
     Active Substance: ETOPOSIDE
     Indication: Small cell lung cancer extensive stage
     Dosage: MOST RECENT DOSE OF ETOPOSIDE PRIOR TO AE/SAE 18/JUL/2021
     Route: 042
     Dates: start: 20210510
  4. ROSUVASTATIN CALCIUM [Concomitant]
     Active Substance: ROSUVASTATIN CALCIUM
     Route: 048
     Dates: start: 201511
  5. ASPIRIN [Concomitant]
     Active Substance: ASPIRIN
     Route: 048
     Dates: start: 201511
  6. BISOPROLOL FUMARATE [Concomitant]
     Active Substance: BISOPROLOL FUMARATE
     Route: 048
     Dates: start: 201511
  7. CODEINE PHOSPHATE [Concomitant]
     Active Substance: CODEINE PHOSPHATE
     Route: 048
     Dates: start: 20210521

REACTIONS (1)
  - Syncope [Recovered/Resolved]

NARRATIVE: CASE EVENT DATE: 20211103
